FAERS Safety Report 7431132-1 (Version None)
Quarter: 2011Q2

REPORT INFORMATION
  Report Type: 
  Country: None (occurrence: None)
  Receive Date: 20110421
  Receipt Date: 20110411
  Transmission Date: 20111010
  Serious: Yes (Other)
  Sender: FDA-Public Use
  Company Number: FR-BAXTER-2011BH011741

PATIENT
  Age: 31 Year
  Sex: Female

DRUGS (7)
  1. DOXORUBICIN GENERIC [Suspect]
     Indication: BONE SARCOMA
     Route: 065
     Dates: start: 20061201, end: 20070101
  2. UROMITEXAN [Concomitant]
     Indication: PROPHYLAXIS
     Route: 065
     Dates: start: 20061201
  3. NEULASTA [Concomitant]
     Indication: PRODUCT USED FOR UNKNOWN INDICATION
     Route: 065
     Dates: start: 20061201
  4. CISPLATIN [Suspect]
     Indication: BONE SARCOMA
     Route: 065
     Dates: start: 20061201, end: 20061201
  5. HOLOXAN BAXTER [Suspect]
     Indication: BONE SARCOMA
     Route: 065
     Dates: start: 20061201, end: 20070101
  6. ZOPHREN [Concomitant]
     Indication: PRODUCT USED FOR UNKNOWN INDICATION
     Route: 065
     Dates: start: 20061201
  7. SOLU-MEDROL [Concomitant]
     Indication: PRODUCT USED FOR UNKNOWN INDICATION
     Route: 065
     Dates: start: 20061201

REACTIONS (2)
  - PREMATURE LABOUR [None]
  - DRUG EXPOSURE DURING PREGNANCY [None]
